FAERS Safety Report 17570462 (Version 1)
Quarter: 2020Q1

REPORT INFORMATION
  Report Type: Spontaneous
  Country: FR (occurrence: FR)
  Receive Date: 20200323
  Receipt Date: 20200323
  Transmission Date: 20200409
  Serious: Yes (Life-Threatening, Hospitalization)
  Sender: FDA-Public Use
  Company Number: FR-TEVA-2020-FR-1206322

PATIENT
  Age: 21 Year
  Sex: Female
  Weight: 53 kg

DRUGS (5)
  1. CODEINE [Suspect]
     Active Substance: CODEINE
     Indication: INTENTIONAL OVERDOSE
     Route: 048
     Dates: start: 20191119, end: 20191119
  2. PARACETAMOL [Suspect]
     Active Substance: ACETAMINOPHEN
     Indication: INTENTIONAL OVERDOSE
     Dosage: 8 GRAM
     Route: 048
     Dates: start: 20191119, end: 20191119
  3. SERTRALINE [Suspect]
     Active Substance: SERTRALINE HYDROCHLORIDE
     Indication: INTENTIONAL OVERDOSE
     Dosage: 700 MILLIGRAM
     Route: 048
     Dates: start: 20191119, end: 20191119
  4. ALPRAZOLAM. [Suspect]
     Active Substance: ALPRAZOLAM
     Indication: INTENTIONAL OVERDOSE
     Dosage: 11 MILLIGRAM
     Route: 048
     Dates: start: 20191119, end: 20191119
  5. TRAMADOL BASE [Suspect]
     Active Substance: TRAMADOL
     Indication: INTENTIONAL OVERDOSE
     Dosage: 2 GRAM
     Route: 048
     Dates: start: 20191119, end: 20191119

REACTIONS (1)
  - Coma [Recovered/Resolved]

NARRATIVE: CASE EVENT DATE: 20191119
